FAERS Safety Report 7726333-9 (Version None)
Quarter: 2011Q3

REPORT INFORMATION
  Report Type: 
  Country: None (occurrence: None)
  Receive Date: 20110902
  Receipt Date: 20110823
  Transmission Date: 20111222
  Serious: Yes (Other)
  Sender: FDA-Public Use
  Company Number: JP-PFIZER INC-2011204535

PATIENT
  Age: 73 Year
  Sex: Male

DRUGS (2)
  1. MUCOSTA [Suspect]
     Dosage: UNK
     Route: 048
     Dates: start: 20110715, end: 20110722
  2. CELECOXIB [Suspect]
     Dosage: 200 MG, DAILY
     Route: 048
     Dates: start: 20110715, end: 20110722

REACTIONS (4)
  - DECREASED APPETITE [None]
  - GAIT DISTURBANCE [None]
  - RASH GENERALISED [None]
  - PYREXIA [None]
